FAERS Safety Report 7456823-8 (Version None)
Quarter: 2011Q2

REPORT INFORMATION
  Report Type: 
  Country: None (occurrence: None)
  Receive Date: 20110504
  Receipt Date: 20110426
  Transmission Date: 20111010
  Serious: Yes (Hospitalization)
  Sender: FDA-Public Use
  Company Number: US-BIOGENIDEC-2011BI015555

PATIENT
  Age: 38 Year
  Sex: Female

DRUGS (3)
  1. STEROID [Concomitant]
     Indication: MULTIPLE SCLEROSIS
  2. AVONEX [Suspect]
     Indication: MULTIPLE SCLEROSIS
     Route: 030
     Dates: start: 20110201
  3. ANTIDEPRESSANT (NOS) [Concomitant]
     Indication: DEPRESSION

REACTIONS (6)
  - INFLUENZA LIKE ILLNESS [None]
  - URINARY INCONTINENCE [None]
  - VOMITING [None]
  - INSOMNIA [None]
  - CONFUSIONAL STATE [None]
  - HALLUCINATION [None]
